FAERS Safety Report 18041170 (Version 2)
Quarter: 2020Q3

REPORT INFORMATION
  Report Type: Spontaneous
  Country: BR (occurrence: BR)
  Receive Date: 20200719
  Receipt Date: 20200807
  Transmission Date: 20201103
  Serious: Yes (Hospitalization)
  Sender: FDA-Public Use
  Company Number: BR-TORRENT-00005383

PATIENT
  Age: 54 Year
  Sex: Female
  Weight: 100 kg

DRUGS (3)
  1. ALENIA [Concomitant]
     Indication: ASTHMA
     Dosage: SIX OR SEVEN YEARS AGO 2013 OR 2014 AND USES IT WHEN NECESSARY
  2. LOSARTAN. [Suspect]
     Active Substance: LOSARTAN
     Indication: HYPERTENSION
     Dosage: UNKNOWN
     Route: 048
     Dates: start: 2019, end: 2019
  3. TORLOS [Suspect]
     Active Substance: LOSARTAN POTASSIUM
     Indication: HYPERTENSION
     Dosage: ONE TABLET DAILY/APPROXIMATELY SIX OR SEVEN YEARS AGO(2013 OR 2014)
     Route: 048

REACTIONS (10)
  - Palpitations [Recovered/Resolved]
  - Product availability issue [Unknown]
  - Product substitution issue [Unknown]
  - Anxiety [Recovered/Resolved]
  - Therapy change [Unknown]
  - Blood cholesterol increased [Unknown]
  - Wrong product administered [Unknown]
  - Blood triglycerides increased [Unknown]
  - Dizziness [Recovered/Resolved]
  - Product design confusion [Unknown]

NARRATIVE: CASE EVENT DATE: 2019
